FAERS Safety Report 25979034 (Version 1)
Quarter: 2025Q4

REPORT INFORMATION
  Report Type: Spontaneous
  Country: US (occurrence: None)
  Receive Date: 20251029
  Receipt Date: 20251029
  Transmission Date: 20260118
  Serious: Yes (Hospitalization)
  Sender: FDA-CTU
  Company Number: None

PATIENT
  Sex: Female

DRUGS (2)
  1. NYVEPRIA [Suspect]
     Active Substance: PEGFILGRASTIM-APGF
     Indication: Neoplasm malignant
     Dosage: 6 MG EVERY 28 DAYS SUBCUTANEOUS ?
     Route: 058
     Dates: start: 20250530
  2. DEVICE [Suspect]
     Active Substance: DEVICE

REACTIONS (1)
  - Device related infection [None]
